FAERS Safety Report 18489052 (Version 1)
Quarter: 2020Q4

REPORT INFORMATION
  Report Type: Spontaneous
  Country: TR (occurrence: TR)
  Receive Date: 20201111
  Receipt Date: 20201111
  Transmission Date: 20210114
  Serious: Yes (Other)
  Sender: FDA-Public Use
  Company Number: TR-GILEAD-2020-0502807

PATIENT
  Age: 69 Year
  Sex: Male

DRUGS (2)
  1. KALETRA [Concomitant]
     Active Substance: LOPINAVIR\RITONAVIR
  2. TRUVADA [Suspect]
     Active Substance: EMTRICITABINE\TENOFOVIR DISOPROXIL FUMARATE
     Indication: HIV INFECTION
     Dosage: UNK
     Route: 065
     Dates: start: 2017

REACTIONS (3)
  - Pneumonia [Recovered/Resolved]
  - CD4 lymphocytes decreased [Recovered/Resolved]
  - Pancreatitis [Recovered/Resolved]
